FAERS Safety Report 5499917-9 (Version None)
Quarter: 2007Q4

REPORT INFORMATION
  Report Type: 
  Country: None (occurrence: None)
  Receive Date: 20071026
  Receipt Date: 20070509
  Transmission Date: 20080405
  Serious: Yes (Life-Threatening, Hospitalization, Disabling, Other)
  Sender: FDA-Public Use
  Company Number: US-MERCK-0704USA02269

PATIENT
  Age: 42 Year
  Sex: Male

DRUGS (2)
  1. JANUVIA [Suspect]
     Indication: TYPE 2 DIABETES MELLITUS
     Route: 048
  2. JANUVIA [Suspect]
     Route: 048

REACTIONS (2)
  - LABYRINTHITIS [None]
  - MASTOIDITIS [None]
